FAERS Safety Report 4749737-5 (Version None)
Quarter: 2005Q3

REPORT INFORMATION
  Report Type: 
  Country: None (occurrence: None)
  Receive Date: 20050822
  Receipt Date: 20050622
  Transmission Date: 20060218
  Serious: Yes (Hospitalization, Disabling, Other)
  Sender: FDA-Public Use
  Company Number: US-MERCK-0506USA03317

PATIENT
  Age: 50 Year
  Sex: Male
  Weight: 82 kg

DRUGS (16)
  1. VIOXX [Suspect]
     Indication: BACK INJURY
     Route: 048
     Dates: start: 20010327, end: 20040901
  2. VIOXX [Suspect]
     Route: 048
     Dates: start: 20010907
  3. VIOXX [Suspect]
     Route: 048
     Dates: start: 20010709
  4. VIOXX [Suspect]
     Indication: ARTHRALGIA
     Route: 048
     Dates: start: 20010327, end: 20040901
  5. VIOXX [Suspect]
     Route: 048
     Dates: start: 20010907
  6. VIOXX [Suspect]
     Route: 048
     Dates: start: 20010709
  7. ENDOCET [Concomitant]
     Route: 065
  8. CARISOPRODOL [Concomitant]
     Route: 065
  9. ZANAFLEX [Concomitant]
     Route: 065
  10. FLOMAX [Concomitant]
     Route: 065
  11. PREDNISONE [Concomitant]
     Route: 065
  12. ACETAMINOPHEN AND HYDROCODONE BITARTRATE [Concomitant]
     Route: 065
  13. ACETAMINOPHEN AND OXYCODONE HYDROCHLORIDE [Concomitant]
     Route: 065
  14. ACETAMINOPHEN AND PROPOXYPHENE NAPSYLATE [Concomitant]
     Route: 065
  15. ULTRAM [Concomitant]
     Route: 065
  16. OXYCONTIN [Concomitant]
     Route: 065

REACTIONS (18)
  - ACUTE MYOCARDIAL INFARCTION [None]
  - ASTHENIA [None]
  - BACK DISORDER [None]
  - BACK INJURY [None]
  - BACK PAIN [None]
  - CORONARY ARTERY DISEASE [None]
  - HAEMORRHOIDS [None]
  - HEADACHE [None]
  - HYPERCHOLESTEROLAEMIA [None]
  - HYPERTENSION [None]
  - INTERVERTEBRAL DISC DEGENERATION [None]
  - LUMBAR RADICULOPATHY [None]
  - MYALGIA [None]
  - MYOCARDIAL INFARCTION [None]
  - PROSTATISM [None]
  - SINUS BRADYCARDIA [None]
  - SYSTOLIC HYPERTENSION [None]
  - UPPER RESPIRATORY TRACT INFECTION [None]
